FAERS Safety Report 5526362-X (Version None)
Quarter: 2007Q4

REPORT INFORMATION
  Report Type: 
  Country: None (occurrence: None)
  Receive Date: 20071121
  Receipt Date: 20071121
  Transmission Date: 20080405
  Serious: Yes (Hospitalization)
  Sender: FDA-Public Use
  Company Number: None

PATIENT
  Age: 82 Year
  Sex: Male

DRUGS (3)
  1. DILTIAZEM [Suspect]
     Indication: ANGINA PECTORIS
     Dosage: 120MG  EVERY DAY  PO
     Route: 048
     Dates: start: 20021127, end: 20071107
  2. DILTIAZEM [Suspect]
     Indication: HYPERTENSION
     Dosage: 120MG  EVERY DAY  PO
     Route: 048
     Dates: start: 20021127, end: 20071107
  3. ISOSORBIDE MONONITRATE [Suspect]
     Dosage: 30MG EVERY DAY PO
     Route: 048
     Dates: start: 20040108

REACTIONS (2)
  - FALL [None]
  - ORTHOSTATIC HYPOTENSION [None]
